FAERS Safety Report 9380402 (Version 1)
Quarter: 2013Q3

REPORT INFORMATION
  Report Type: Report from Study
  Country: US (occurrence: US)
  Receive Date: 20130702
  Receipt Date: 20130702
  Transmission Date: 20140515
  Serious: Yes (Other)
  Sender: FDA-Public Use
  Company Number: PHEH2013US014072

PATIENT
  Sex: Female
  Weight: 60.77 kg

DRUGS (17)
  1. AFINITOR [Suspect]
     Dosage: 10 MG, QD
     Route: 048
  2. ONGLYZA [Concomitant]
  3. FUROSEMIDE [Concomitant]
  4. MEGESTROL ACETATE [Concomitant]
  5. PREDNISONE [Concomitant]
     Dosage: UNK UKN, UNK
  6. LANTUS OPTICLIK [Concomitant]
  7. ENALAPRIL [Concomitant]
  8. OXYBUTYNIN [Concomitant]
  9. FENTANYL [Concomitant]
  10. GLIMEPIRIDE [Concomitant]
  11. DIGOXIN [Concomitant]
  12. NOVOLOG FLEXPEN [Concomitant]
  13. TOPROL XL [Concomitant]
  14. NEXUM [Concomitant]
  15. DILTIAZEM [Concomitant]
  16. ALLOPURINOL [Concomitant]
  17. OXYCODONE [Concomitant]

REACTIONS (3)
  - Blood glucose decreased [Unknown]
  - Stomatitis [Recovered/Resolved]
  - Haematuria [Unknown]
